FAERS Safety Report 6841856-2 (Version None)
Quarter: 2010Q3

REPORT INFORMATION
  Report Type: 
  Country: None (occurrence: None)
  Receive Date: 20100714
  Receipt Date: 20070714
  Transmission Date: 20110219
  Serious: No
  Sender: FDA-Public Use
  Company Number: US-PFIZER INC-2007059488

PATIENT
  Sex: Female
  Weight: 75.3 kg

DRUGS (5)
  1. CHANTIX [Suspect]
     Indication: SMOKING CESSATION THERAPY
     Dates: start: 20070714
  2. METOPROLOL [Concomitant]
  3. ACETYLSALICYLIC ACID [Concomitant]
  4. SPIRIVA [Concomitant]
  5. ZOCOR [Concomitant]

REACTIONS (2)
  - HYPOAESTHESIA ORAL [None]
  - PARAESTHESIA ORAL [None]
